FAERS Safety Report 21787588 (Version 2)
Quarter: 2023Q1

REPORT INFORMATION
  Report Type: Spontaneous
  Country: JP (occurrence: JP)
  Receive Date: 20221228
  Receipt Date: 20230126
  Transmission Date: 20230417
  Serious: Yes (Death, Other)
  Sender: FDA-Public Use
  Company Number: JP-ASTELLAS-2022JP019186

PATIENT
  Age: 6 Decade
  Sex: Female

DRUGS (2)
  1. XOSPATA [Suspect]
     Active Substance: GILTERITINIB
     Indication: Acute myeloid leukaemia
     Route: 048
     Dates: start: 20220411, end: 20220502
  2. XOSPATA [Suspect]
     Active Substance: GILTERITINIB
     Route: 048
     Dates: start: 20221024, end: 20221121

REACTIONS (2)
  - Acute myeloid leukaemia [Fatal]
  - Drug ineffective [Unknown]

NARRATIVE: CASE EVENT DATE: 20221129
